FAERS Safety Report 11798323 (Version 1)
Quarter: 2015Q4

REPORT INFORMATION
  Report Type: Spontaneous
  Country: PL (occurrence: PL)
  Receive Date: 20151203
  Receipt Date: 20151203
  Transmission Date: 20160305
  Serious: Yes (Death, Other)
  Sender: FDA-Public Use
  Company Number: PL-TEVA-599281ACC

PATIENT
  Age: 70 Year
  Sex: Female
  Weight: 74 kg

DRUGS (1)
  1. OXALIPLATIN. [Suspect]
     Active Substance: OXALIPLATIN
     Indication: RECTOSIGMOID CANCER
     Route: 042
     Dates: start: 20140123

REACTIONS (2)
  - Thrombocytopenia [Unknown]
  - Death [Fatal]

NARRATIVE: CASE EVENT DATE: 20140731
